FAERS Safety Report 10093417 (Version 1)
Quarter: 2014Q2

REPORT INFORMATION
  Report Type: Spontaneous
  Country: US (occurrence: US)
  Receive Date: 20140421
  Receipt Date: 20140421
  Transmission Date: 20141212
  Serious: No
  Sender: FDA-Public Use
  Company Number: US-SA-2013SA126379

PATIENT
  Age: 16 Year
  Sex: Female

DRUGS (2)
  1. ALLEGRA [Suspect]
     Indication: NASOPHARYNGITIS
     Route: 048
     Dates: start: 20131202, end: 20131203
  2. ALLEGRA [Suspect]
     Indication: HYPERSENSITIVITY
     Route: 048
     Dates: start: 20131202, end: 20131203

REACTIONS (1)
  - Loss of consciousness [Recovered/Resolved]
